FAERS Safety Report 5503200-2 (Version None)
Quarter: 2007Q4

REPORT INFORMATION
  Report Type: 
  Country: None (occurrence: None)
  Receive Date: 20071031
  Receipt Date: 20071023
  Transmission Date: 20080405
  Serious: Yes (Death)
  Sender: FDA-Public Use
  Company Number: BE-AMGEN-US250207

PATIENT

DRUGS (1)
  1. ENBREL [Suspect]
     Indication: ACUTE GRAFT VERSUS HOST DISEASE IN INTESTINE
     Dosage: EITHER 25 MG WEEKLY FOR FOUR WEEKS OR 25 MG WEEKLY FOR TWO WEEKS
     Route: 058

REACTIONS (2)
  - PNEUMONIA KLEBSIELLA [None]
  - SEPTIC SHOCK [None]
